FAERS Safety Report 5987009-1 (Version None)
Quarter: 2008Q4

REPORT INFORMATION
  Report Type: 
  Country: None (occurrence: None)
  Receive Date: 20081124
  Receipt Date: 20081111
  Transmission Date: 20090506
  Serious: Yes (Hospitalization)
  Sender: FDA-Public Use
  Company Number: AEGBR200800273

PATIENT
  Age: 5 Month
  Sex: Female

DRUGS (5)
  1. IMMUNE GLOBULIN INTRAVENOUS (HUMAN) [Suspect]
     Indication: IMMUNODEFICIENCY CONGENITAL
  2. CYCLOPHOSPHAMIDE [Suspect]
     Indication: IMMUNODEFICIENCY CONGENITAL
     Dates: start: 20081009, end: 20081012
  3. CYCLOSPORINE [Suspect]
     Indication: IMMUNODEFICIENCY CONGENITAL
  4. KEPIVANCE [Suspect]
     Indication: IMMUNODEFICIENCY CONGENITAL
     Dosage: 60 MCG/KG; QD
     Dates: start: 20081010, end: 20081012
  5. TREOSULFAN [Concomitant]

REACTIONS (3)
  - CONVULSION [None]
  - RASH [None]
  - STEM CELL TRANSPLANT [None]
